FAERS Safety Report 6298390-0 (Version None)
Quarter: 2009Q3

REPORT INFORMATION
  Report Type: 
  Country: None (occurrence: None)
  Receive Date: 20090805
  Receipt Date: 20090727
  Transmission Date: 20100115
  Serious: Yes (Hospitalization, Other)
  Sender: FDA-Public Use
  Company Number: PHHY2009BR31309

PATIENT
  Sex: Male
  Weight: 90 kg

DRUGS (5)
  1. TEGRETOL [Suspect]
     Dosage: 200 MG 3 TO 4 TABLETS DAILY
     Route: 048
     Dates: start: 20090101
  2. TEGRETOL [Suspect]
     Dosage: 400 MG 2 TO 3 TABLETS DAILY
  3. TRILEPTAL [Suspect]
     Dosage: 600 MG, UNK
  4. AMITRIPTYLINE HCL [Concomitant]
     Indication: PAIN
     Dosage: 25 MG, QD
     Route: 048
  5. DIMORF [Concomitant]
     Indication: PAIN
     Dosage: UNK

REACTIONS (3)
  - FACE INJURY [None]
  - FALL [None]
  - GRAND MAL CONVULSION [None]
